FAERS Safety Report 22377683 (Version 1)
Quarter: 2023Q2

REPORT INFORMATION
  Report Type: Report from Study
  Country: US (occurrence: None)
  Receive Date: 20230529
  Receipt Date: 20230529
  Transmission Date: 20230721
  Serious: Yes (Death)
  Sender: FDA-Public Use
  Company Number: 2023A121753

PATIENT
  Sex: Male

DRUGS (10)
  1. KOSELUGO [Suspect]
     Active Substance: SELUMETINIB
     Indication: Neurofibromatosis
     Route: 048
     Dates: start: 20220615
  2. ALBUTEROL [Concomitant]
     Active Substance: ALBUTEROL
  3. FLOVENT [Concomitant]
     Active Substance: FLUTICASONE PROPIONATE
  4. ATROVENT [Concomitant]
     Active Substance: IPRATROPIUM BROMIDE
  5. PREDNISONE [Concomitant]
     Active Substance: PREDNISONE
  6. ZYRTEC [Concomitant]
     Active Substance: CETIRIZINE HYDROCHLORIDE
  7. VITAMINS [Concomitant]
     Active Substance: VITAMINS
  8. ZOFRAN [Concomitant]
     Active Substance: ONDANSETRON HYDROCHLORIDE
  9. MIRALAX [Concomitant]
     Active Substance: POLYETHYLENE GLYCOL 3350
  10. DOXYCYCLINE [Concomitant]
     Active Substance: DOXYCYCLINE

REACTIONS (1)
  - Death [Fatal]
